FAERS Safety Report 5719932-7 (Version None)
Quarter: 2008Q2

REPORT INFORMATION
  Report Type: 
  Country: None (occurrence: None)
  Receive Date: 20080424
  Receipt Date: 20080416
  Transmission Date: 20081010
  Serious: Yes (Other)
  Sender: FDA-Public Use
  Company Number: 2008007618

PATIENT
  Age: 85 Year
  Sex: Female

DRUGS (2)
  1. BENYLIN [Suspect]
     Dosage: 1 DOSE OF 2 SPOONSFULS, ORAL
     Route: 048
  2. DRUG, UNSPECIFIED (DRUG, UNSPECIFIED) [Concomitant]

REACTIONS (2)
  - DIZZINESS [None]
  - SYNCOPE [None]
